FAERS Safety Report 16826958 (Version 1)
Quarter: 2019Q3

REPORT INFORMATION
  Report Type: Report from Study
  Country: DE (occurrence: DE)
  Receive Date: 20190919
  Receipt Date: 20190919
  Transmission Date: 20191005
  Serious: Yes (Other)
  Sender: FDA-Public Use
  Company Number: DE-MYLANLABS-2019M1086619

PATIENT
  Sex: Female
  Weight: 130 kg

DRUGS (8)
  1. DOXEPIN [Concomitant]
     Active Substance: DOXEPIN
     Dosage: UNK
  2. PANTOPRAZOLE [Suspect]
     Active Substance: PANTOPRAZOLE
     Indication: PRODUCT USED FOR UNKNOWN INDICATION
     Dosage: UNK
  3. METFORMIN [Concomitant]
     Active Substance: METFORMIN HYDROCHLORIDE
  4. NEUROCIL                           /00038602/ [Concomitant]
     Active Substance: LEVOMEPROMAZINE MALEATE
     Dosage: UNK
  5. ERGENYL CHRONO [Concomitant]
     Active Substance: VALPROIC ACID
  6. CLINOVIR                           /00115202/ [Suspect]
     Active Substance: MEDROXYPROGESTERONE ACETATE
     Indication: HORMONAL CONTRACEPTION
     Dosage: UNK
     Dates: start: 20161016, end: 20181003
  7. SEROQUEL [Concomitant]
     Active Substance: QUETIAPINE FUMARATE
  8. DOXAZOSIN [Concomitant]
     Active Substance: DOXAZOSIN MESYLATE

REACTIONS (2)
  - Deep vein thrombosis [Unknown]
  - Pulmonary embolism [Unknown]

NARRATIVE: CASE EVENT DATE: 20181118
